FAERS Safety Report 10519854 (Version 1)
Quarter: 2014Q4

REPORT INFORMATION
  Report Type: Spontaneous
  Country: US (occurrence: None)
  Receive Date: 20141014
  Receipt Date: 20141014
  Transmission Date: 20150528
  Serious: No
  Sender: FDA-Public Use
  Company Number: None

PATIENT
  Age: 78 Year
  Sex: Female

DRUGS (12)
  1. CHLORTHALIDONE (HYGROTON) [Concomitant]
  2. REVLIMID [Suspect]
     Active Substance: LENALIDOMIDE
     Indication: PLASMA CELL MYELOMA
     Dosage: 14D/21D
     Route: 048
     Dates: start: 20140918
  3. REVLIMID [Suspect]
     Active Substance: LENALIDOMIDE
     Route: 048
     Dates: start: 20140224, end: 20140917
  4. LOSARTAN (COZAAR) [Concomitant]
  5. ACYCLOVIR (ZOVIRAX) [Concomitant]
  6. FUROSEMIDE (LASIX) [Concomitant]
  7. AMLODIPINE (NORVASC) [Concomitant]
  8. OMEPRAZOLE (PRILOSEC) [Concomitant]
  9. DEXAMETHASONE (DECADRON) [Concomitant]
  10. FISH OIL [Concomitant]
     Active Substance: FISH OIL
  11. POTASSIUM CHLORIDE (K-TAB) [Concomitant]
  12. ASPIRIN (ASPIR-LOW) [Concomitant]

REACTIONS (2)
  - Fatigue [None]
  - Rash [None]

NARRATIVE: CASE EVENT DATE: 20141008
